FAERS Safety Report 19659398 (Version 2)
Quarter: 2021Q3

REPORT INFORMATION
  Report Type: Report from Study
  Country: US (occurrence: US)
  Receive Date: 20210805
  Receipt Date: 20210909
  Transmission Date: 20211014
  Serious: Yes (Death, Life-Threatening, Hospitalization, Other)
  Sender: FDA-Public Use
  Company Number: US-ROCHE-2879828

PATIENT
  Age: 52 Year
  Sex: Male
  Weight: 109.4 kg

DRUGS (13)
  1. IBRUTINIB [Suspect]
     Active Substance: IBRUTINIB
     Dosage: ON DAYS 1?28, CYCLES 1?19
     Route: 048
  2. REMDESIVIR. [Concomitant]
     Active Substance: REMDESIVIR
  3. VENETOCLAX. [Suspect]
     Active Substance: VENETOCLAX
     Route: 048
  4. VENETOCLAX. [Suspect]
     Active Substance: VENETOCLAX
     Route: 048
  5. VENETOCLAX. [Suspect]
     Active Substance: VENETOCLAX
     Route: 048
  6. OBINUTUZUMAB. [Suspect]
     Active Substance: OBINUTUZUMAB
     Indication: CHRONIC LYMPHOCYTIC LEUKAEMIA
     Dosage: ON 04/DEC/2020, HE RECEIVED LAST DOSE OF OBINUTUZUMAB.?1000 MG IV ON DAY 8, CYCLE 1?1000 MG IV ON DA
     Route: 042
     Dates: start: 20200715
  7. OBINUTUZUMAB. [Suspect]
     Active Substance: OBINUTUZUMAB
     Dosage: ON DAY 2, CYCLE 1
     Route: 042
  8. VENETOCLAX. [Suspect]
     Active Substance: VENETOCLAX
     Indication: CHRONIC LYMPHOCYTIC LEUKAEMIA
     Dosage: ON 06/JUL/2021, HE RECEIVED LAST DOSE OF VENETOCLAX.
     Route: 048
     Dates: start: 20210415
  9. VENETOCLAX. [Suspect]
     Active Substance: VENETOCLAX
     Route: 048
  10. VENETOCLAX. [Suspect]
     Active Substance: VENETOCLAX
     Route: 048
     Dates: start: 20200715
  11. IBRUTINIB [Suspect]
     Active Substance: IBRUTINIB
     Indication: CHRONIC LYMPHOCYTIC LEUKAEMIA
     Dosage: ON 06/JUL/2021, HE RECEIVED LAST DOSE OF IBRUTINIB. ?PT DID NOT RETURN PILL CALENDAR SO CAN ONLY ASS
     Route: 048
     Dates: start: 20210415
  12. OBINUTUZUMAB. [Suspect]
     Active Substance: OBINUTUZUMAB
     Dosage: ON DAY 1, CYCLE 1
     Route: 042
  13. DEXAMETHASONE. [Concomitant]
     Active Substance: DEXAMETHASONE

REACTIONS (3)
  - COVID-19 pneumonia [Fatal]
  - Hypoxia [Unknown]
  - Respiratory failure [Unknown]

NARRATIVE: CASE EVENT DATE: 20210707
